FAERS Safety Report 8070077-3 (Version None)
Quarter: 2012Q1

REPORT INFORMATION
  Report Type: 
  Country: None (occurrence: None)
  Receive Date: 20120119
  Receipt Date: 20120110
  Transmission Date: 20120608
  Serious: Yes (Other)
  Sender: FDA-Public Use
  Company Number: DKLU1076036

PATIENT
  Age: 7 Year
  Sex: Male

DRUGS (2)
  1. DESOXYN [Suspect]
     Indication: PRODUCT USED FOR UNKNOWN INDICATION
  2. MARIJUANA (CANNABIS SATIVA) [Suspect]
     Indication: PRODUCT USED FOR UNKNOWN INDICATION

REACTIONS (11)
  - MATERNAL EXPOSURE DURING PREGNANCY [None]
  - VERBAL ABUSE [None]
  - AGORAPHOBIA [None]
  - AUTISM [None]
  - MATERNAL USE OF ILLICIT DRUGS [None]
  - CAESAREAN SECTION [None]
  - FIGHT IN SCHOOL [None]
  - PHYSICAL ABUSE [None]
  - AGGRESSION [None]
  - ABNORMAL BEHAVIOUR [None]
  - MIXED RECEPTIVE-EXPRESSIVE LANGUAGE DISORDER [None]
